FAERS Safety Report 10503729 (Version 2)
Quarter: 2014Q4

REPORT INFORMATION
  Report Type: Spontaneous
  Country: US (occurrence: None)
  Receive Date: 20141006
  Receipt Date: 20141107
  Transmission Date: 20150528
  Serious: Yes (Other)
  Sender: FDA-Public Use
  Company Number: 2014-US-003178

PATIENT
  Age: 45 Year
  Sex: Female
  Weight: 112 kg

DRUGS (13)
  1. ZYRTEC [Concomitant]
     Active Substance: CETIRIZINE HYDROCHLORIDE
  2. XYREM [Suspect]
     Active Substance: SODIUM OXYBATE
     Indication: CATAPLEXY
     Route: 048
     Dates: start: 201403, end: 2014
  3. CYMBALTA [Suspect]
     Active Substance: DULOXETINE HYDROCHLORIDE
     Indication: DEPRESSION
     Dates: start: 201403, end: 2014
  4. XYREM [Suspect]
     Active Substance: SODIUM OXYBATE
     Indication: NARCOLEPSY
     Route: 048
     Dates: start: 201403, end: 2014
  5. PANTOPRAZOLE SODIUM (PANTOPRAZOLE SODIUM SESQUIHYDRATE) [Concomitant]
  6. CELEBREX [Concomitant]
     Active Substance: CELECOXIB
  7. CYMBALTA [Suspect]
     Active Substance: DULOXETINE HYDROCHLORIDE
     Indication: FIBROMYALGIA
     Dates: start: 201403, end: 2014
  8. LYRICA [Concomitant]
     Active Substance: PREGABALIN
  9. ADDERALL [Concomitant]
     Active Substance: AMPHETAMINE ASPARTATE\AMPHETAMINE SULFATE\DEXTROAMPHETAMINE SACCHARATE\DEXTROAMPHETAMINE SULFATE
  10. TOPAMAX [Concomitant]
     Active Substance: TOPIRAMATE
  11. ADDERALL XR (AMFETAMINE ASPARTATE, AMFETAMINE SULFATE, DEXAMFETAMINE SACCHARATE, SEXAMFETAMINE SULFATE) [Concomitant]
  12. VESICARE [Suspect]
     Active Substance: SOLIFENACIN SUCCINATE
     Indication: INCONTINENCE
     Route: 048
     Dates: start: 20140303, end: 2014
  13. TRAMADOL HYDROCHLORIDE. [Concomitant]
     Active Substance: TRAMADOL HYDROCHLORIDE

REACTIONS (15)
  - Mydriasis [None]
  - Condition aggravated [None]
  - Nausea [None]
  - Dry mouth [None]
  - Intentional product misuse [None]
  - Gastrooesophageal reflux disease [None]
  - Dizziness [None]
  - Confusional state [None]
  - Weight decreased [None]
  - Extrapyramidal disorder [None]
  - Feeling drunk [None]
  - Glossitis [None]
  - Incontinence [None]
  - Fall [None]
  - Tardive dyskinesia [None]

NARRATIVE: CASE EVENT DATE: 201403
